FAERS Safety Report 15361925 (Version 3)
Quarter: 2018Q3

REPORT INFORMATION
  Report Type: Spontaneous
  Country: BR (occurrence: BR)
  Receive Date: 20180907
  Receipt Date: 20180921
  Transmission Date: 20181010
  Serious: Yes (Life-Threatening, Hospitalization, Other)
  Sender: FDA-Public Use
  Company Number: PHHY2018BR090171

PATIENT
  Age: 25 Year
  Sex: Female

DRUGS (4)
  1. TASIGNA [Suspect]
     Active Substance: NILOTINIB
     Dosage: 400 MG, QD
     Route: 065
  2. TASIGNA [Suspect]
     Active Substance: NILOTINIB
     Indication: BLAST CRISIS IN MYELOGENOUS LEUKAEMIA
     Dosage: UNK
     Route: 065
  3. TASIGNA [Suspect]
     Active Substance: NILOTINIB
     Dosage: 200 MG, BID
     Route: 065
  4. IMATINIB [Suspect]
     Active Substance: IMATINIB
     Indication: CHRONIC MYELOID LEUKAEMIA
     Dosage: 400 MG, QD
     Route: 065

REACTIONS (11)
  - Treatment failure [Unknown]
  - Acute promyelocytic leukaemia differentiation syndrome [Unknown]
  - General physical health deterioration [Unknown]
  - Pyrexia [Unknown]
  - Lung infection [Unknown]
  - Metrorrhagia [Unknown]
  - Pancytopenia [Recovering/Resolving]
  - Neurotoxicity [Unknown]
  - Blast crisis in myelogenous leukaemia [Unknown]
  - Fungal infection [Unknown]
  - Therapeutic response decreased [Unknown]
